FAERS Safety Report 8887363 (Version 1)
Quarter: 2012Q4

REPORT INFORMATION
  Report Type: 
  Country: CN (occurrence: CN)
  Receive Date: 20121105
  Receipt Date: 20121105
  Transmission Date: 20130627
  Serious: Yes (Other)
  Sender: FDA-Public Use
  Company Number: CN-BAYER-2012-115120

PATIENT
  Age: 67 Year
  Sex: Male
  Weight: 75 kg

DRUGS (2)
  1. ACETYLSALICYLIC ACID({=100 MG) [Suspect]
     Indication: COAGULATION DEFECTS, OTHER AND UNSPECIFIED
     Dosage: 100 mg, QD
     Route: 048
     Dates: start: 20100706, end: 20110609
  2. CLOPIDOGREL [Interacting]
     Route: 048

REACTIONS (4)
  - Thrombocytopenia [Recovered/Resolved]
  - Gingival bleeding [Recovered/Resolved]
  - Epistaxis [Recovered/Resolved]
  - Purpura [Recovered/Resolved]
